FAERS Safety Report 13942908 (Version 1)
Quarter: 2017Q3

REPORT INFORMATION
  Report Type: Spontaneous
  Country: FR (occurrence: FR)
  Receive Date: 20170906
  Receipt Date: 20170906
  Transmission Date: 20171128
  Serious: Yes (Other)
  Sender: FDA-Public Use
  Company Number: FR-MERCK KGAA-2025581

PATIENT
  Age: 63 Year
  Sex: Female

DRUGS (1)
  1. NOVOTHYROX [Suspect]
     Active Substance: LEVOTHYROXINE SODIUM
     Indication: HYPOTHYROIDISM
     Route: 048
     Dates: start: 20170705, end: 20170731

REACTIONS (5)
  - Diarrhoea [Recovered/Resolved]
  - Tremor [Recovering/Resolving]
  - Hyperthyroidism [Recovering/Resolving]
  - Malaise [Recovering/Resolving]
  - Product formulation issue [Recovering/Resolving]

NARRATIVE: CASE EVENT DATE: 20170721
